FAERS Safety Report 23842052 (Version 2)
Quarter: 2024Q2

REPORT INFORMATION
  Report Type: Spontaneous
  Country: IN (occurrence: IN)
  Receive Date: 20240510
  Receipt Date: 20240618
  Transmission Date: 20240716
  Serious: Yes (Other)
  Sender: FDA-Public Use
  Company Number: IN-PFIZER INC-PV202400056542

PATIENT
  Age: 67 Year
  Sex: Female
  Weight: 78.3 kg

DRUGS (4)
  1. LORLATINIB [Suspect]
     Active Substance: LORLATINIB
     Dosage: 100 MG, ONCE DAILY
     Route: 048
     Dates: start: 20240317
  2. MEGASTY [Concomitant]
     Dosage: 160 MG, ONCE DAILY
  3. RANITIDINE HYDROCHLORIDE [Concomitant]
     Active Substance: RANITIDINE HYDROCHLORIDE
     Dosage: 150 MG, 2X/DAY BEFORE MEALS IF NEEDED
  4. ROSUVASTATIN CALCIUM [Concomitant]
     Active Substance: ROSUVASTATIN CALCIUM
     Dosage: ONE 10 MG TABLET ONCE DAILY

REACTIONS (5)
  - Electrocardiogram QT prolonged [Unknown]
  - Blood triglycerides increased [Unknown]
  - Cardiomegaly [Unknown]
  - Blood pressure systolic increased [Unknown]
  - Oxygen saturation decreased [Unknown]

NARRATIVE: CASE EVENT DATE: 20240427
